FAERS Safety Report 4984106-4 (Version None)
Quarter: 2006Q1

REPORT INFORMATION
  Report Type: 
  Country: None (occurrence: None)
  Receive Date: 20060302
  Receipt Date: 20050420
  Transmission Date: 20060701
  Serious: Yes (Hospitalization)
  Sender: FDA-Public Use
  Company Number: 1791

PATIENT
  Sex: Female

DRUGS (2)
  1. TARGRETIN [Suspect]
     Dosage: 525 MG DAILY PO
     Route: 048
  2. TARGRETIN [Suspect]
     Dosage: 450 MG DAILY PO
     Route: 048

REACTIONS (1)
  - LEUKOPENIA [None]
